FAERS Safety Report 5190613-4 (Version None)
Quarter: 2006Q4

REPORT INFORMATION
  Report Type: 
  Country: None (occurrence: None)
  Receive Date: 20061222
  Receipt Date: 20060925
  Transmission Date: 20070319
  Serious: No
  Sender: FDA-Public Use
  Company Number: US-BRISTOL-MYERS SQUIBB COMPANY-13519996

PATIENT
  Age: 51 Year
  Sex: Female
  Weight: 76 kg

DRUGS (8)
  1. ORENCIA [Suspect]
     Indication: RHEUMATOID ARTHRITIS
     Dosage: ADDITIONAL LOT#: MTN533A, EXP OCT-07; MPK524A, EXP AUG-07; MTN534A, EXP OCT-07; MUB504A, EXP JAN-08
     Route: 042
     Dates: start: 20060525
  2. PAXIL [Concomitant]
  3. SYNTHROID [Concomitant]
  4. RELAFEN [Concomitant]
  5. CYTOTEC [Concomitant]
  6. METHOTREXATE [Concomitant]
  7. FOLIC ACID [Concomitant]
  8. CALCIUM + VITAMIN D [Concomitant]

REACTIONS (1)
  - PRURITUS [None]
